FAERS Safety Report 24246422 (Version 2)
Quarter: 2025Q2

REPORT INFORMATION
  Report Type: Spontaneous
  Country: US (occurrence: US)
  Receive Date: 20240825
  Receipt Date: 20250429
  Transmission Date: 20250716
  Serious: No
  Sender: DR REDDYS
  Company Number: US-E2BLSMVVAL-SPO/USA/24/0011231

PATIENT
  Age: 22 Year

DRUGS (3)
  1. ACCUTANE [Suspect]
     Active Substance: ISOTRETINOIN
     Indication: Product used for unknown indication
  2. ACCUTANE [Suspect]
     Active Substance: ISOTRETINOIN
  3. ACCUTANE [Suspect]
     Active Substance: ISOTRETINOIN
     Dates: start: 20240422

REACTIONS (17)
  - Acne [Unknown]
  - Initial insomnia [Unknown]
  - Epistaxis [Unknown]
  - Mood altered [Unknown]
  - Insomnia [Unknown]
  - Brain fog [Unknown]
  - Chapped lips [Unknown]
  - Xerosis [Unknown]
  - Dry eye [Unknown]
  - Dry skin [Unknown]
  - Dry skin [Unknown]
  - Eye discharge [Unknown]
  - Dry skin [Unknown]
  - Epistaxis [Unknown]
  - Headache [Unknown]
  - Papule [Unknown]
  - Cheilitis [Unknown]

NARRATIVE: CASE EVENT DATE: 20240220
